FAERS Safety Report 5196165-7 (Version None)
Quarter: 2006Q4

REPORT INFORMATION
  Report Type: 
  Country: None (occurrence: None)
  Receive Date: 20061222
  Receipt Date: 20061212
  Transmission Date: 20070319
  Serious: Yes (Hospitalization, Other)
  Sender: FDA-Public Use
  Company Number: HQWYE062114DEC06

PATIENT
  Age: 33 Year
  Sex: Male

DRUGS (5)
  1. ETODOLAC [Suspect]
     Indication: BACK PAIN
     Dosage: 400 MG 1X PER 1 DATY
     Route: 048
     Dates: start: 20061127, end: 20061127
  2. RINLAXER (CHLORPHENESIN CARBAMATE) [Concomitant]
  3. ISALON (ALDIOXA) [Concomitant]
  4. AZULENE (AZULENE) [Concomitant]
  5. MOHRUS (KETOPROFEN) [Concomitant]

REACTIONS (3)
  - BLOOD PRESSURE DECREASED [None]
  - DRUG ERUPTION [None]
  - DYSPNOEA [None]
